FAERS Safety Report 7299902-0 (Version None)
Quarter: 2011Q1

REPORT INFORMATION
  Report Type: 
  Country: None (occurrence: None)
  Receive Date: 20110208
  Receipt Date: 20110124
  Transmission Date: 20110831
  Serious: Yes (Hospitalization, Other)
  Sender: FDA-Public Use
  Company Number: 2011-00125

PATIENT
  Age: 40 Year
  Sex: Female

DRUGS (4)
  1. BISOPROLOL (UNKNOWN) [Concomitant]
  2. FRUSEMIDE (FUROSEMIDE) (UNKNOWN) [Concomitant]
  3. SPIRONOLACTONE (UNKNOWN) [Concomitant]
  4. LISINOPRIL [Suspect]
     Indication: DRUG EXPOSURE DURING PREGNANCY

REACTIONS (4)
  - PREMATURE LABOUR [None]
  - PREMATURE RUPTURE OF MEMBRANES [None]
  - DRUG EXPOSURE DURING PREGNANCY [None]
  - OLIGOHYDRAMNIOS [None]
